FAERS Safety Report 5598547-8 (Version None)
Quarter: 2008Q1

REPORT INFORMATION
  Report Type: 
  Country: None (occurrence: None)
  Receive Date: 20080122
  Receipt Date: 20080118
  Transmission Date: 20080703
  Serious: Yes (Death, Hospitalization)
  Sender: FDA-Public Use
  Company Number: FR-SANOFI-SYNTHELABO-F01200800092

PATIENT
  Sex: Male

DRUGS (2)
  1. CAPECITABINE [Suspect]
     Indication: HEPATIC NEOPLASM MALIGNANT
     Route: 048
     Dates: start: 20040318, end: 20040330
  2. OXALIPLATIN [Suspect]
     Indication: HEPATIC NEOPLASM MALIGNANT
     Route: 042
     Dates: start: 20040319, end: 20040319

REACTIONS (5)
  - DIARRHOEA [None]
  - ENCEPHALOPATHY [None]
  - HYPOVOLAEMIC SHOCK [None]
  - MYOCARDIAL INFARCTION [None]
  - RENAL FAILURE [None]
